FAERS Safety Report 23830228 (Version 6)
Quarter: 2025Q3

REPORT INFORMATION
  Report Type: Report from Study
  Country: ID (occurrence: ID)
  Receive Date: 20240508
  Receipt Date: 20250722
  Transmission Date: 20251020
  Serious: Yes (Death, Hospitalization, Other)
  Sender: NOVARTIS
  Company Number: ID-002147023-NVSC2024ID090101

PATIENT
  Age: 82 Year
  Sex: Female
  Weight: 49 kg

DRUGS (4)
  1. LEQVIO [Suspect]
     Active Substance: INCLISIRAN SODIUM
     Indication: Arteriosclerosis
     Dosage: 1 DOSAGE FORM (284MG/1.5ML), Q3MO
     Route: 058
     Dates: start: 20240118, end: 20240118
  2. LEQVIO [Suspect]
     Active Substance: INCLISIRAN SODIUM
     Indication: Type IIa hyperlipidaemia
     Route: 058
  3. SPIRONOLACTONE [Concomitant]
     Active Substance: SPIRONOLACTONE
     Indication: N-terminal prohormone brain natriuretic peptide increased
     Route: 065
     Dates: start: 20240325
  4. DAPAGLIFLOZIN [Concomitant]
     Active Substance: DAPAGLIFLOZIN
     Indication: N-terminal prohormone brain natriuretic peptide increased
     Route: 065
     Dates: start: 20240325

REACTIONS (14)
  - Septic shock [Fatal]
  - Dizziness [Unknown]
  - Vision blurred [Unknown]
  - Cardiac failure congestive [Not Recovered/Not Resolved]
  - Angina pectoris [Recovered/Resolved with Sequelae]
  - Dyspnoea [Recovered/Resolved with Sequelae]
  - Pericardial effusion [Unknown]
  - Atrial fibrillation [Unknown]
  - Dyspnoea [Unknown]
  - Pleural effusion [Unknown]
  - Sinus node dysfunction [Unknown]
  - Oedema peripheral [Unknown]
  - Troponin increased [Unknown]
  - White blood cell count increased [Unknown]

NARRATIVE: CASE EVENT DATE: 20240221
